FAERS Safety Report 7347845-6 (Version None)
Quarter: 2011Q1

REPORT INFORMATION
  Report Type: 
  Country: None (occurrence: None)
  Receive Date: 20110311
  Receipt Date: 20110309
  Transmission Date: 20110831
  Serious: Yes (Other)
  Sender: FDA-Public Use
  Company Number: A0917311A

PATIENT
  Age: 62 Year
  Sex: Female
  Weight: 89.1 kg

DRUGS (5)
  1. METFORMIN [Concomitant]
  2. ALLI [Suspect]
     Route: 048
     Dates: start: 20100101
  3. FISH OIL [Concomitant]
  4. BLOOD PRESSURE MEDICATION [Concomitant]
  5. VITAMIN B-12 [Concomitant]

REACTIONS (2)
  - VAGINAL HAEMORRHAGE [None]
  - PRODUCT QUALITY ISSUE [None]
